FAERS Safety Report 15231089 (Version 1)
Quarter: 2018Q3

REPORT INFORMATION
  Report Type: Spontaneous
  Country: US (occurrence: US)
  Receive Date: 20180802
  Receipt Date: 20180802
  Transmission Date: 20181010
  Serious: Yes (Other)
  Sender: FDA-Public Use
  Company Number: US-009507513-1807USA012008

PATIENT
  Age: 19 Year
  Sex: Female
  Weight: 66.3 kg

DRUGS (1)
  1. NEXPLANON [Suspect]
     Active Substance: ETONOGESTREL
     Dosage: FIRST IMPLANT IN THE LEFT, NON?DOMINANT ARM
     Route: 059
     Dates: start: 20160607, end: 20180726

REACTIONS (8)
  - Implant site scar [Unknown]
  - Weight increased [Unknown]
  - Device dislocation [Recovered/Resolved]
  - Headache [Unknown]
  - Implant site fibrosis [Unknown]
  - Galactorrhoea [Unknown]
  - Device deployment issue [Recovered/Resolved]
  - Complication associated with device [Recovered/Resolved]

NARRATIVE: CASE EVENT DATE: 20160607
